FAERS Safety Report 18463832 (Version 1)
Quarter: 2020Q4

REPORT INFORMATION
  Report Type: Spontaneous
  Country: US (occurrence: US)
  Receive Date: 20201104
  Receipt Date: 20201104
  Transmission Date: 20210114
  Serious: Yes (Hospitalization, Other)
  Sender: FDA-Public Use
  Company Number: US-FERRINGPH-2020FE07700

PATIENT
  Age: 46 Year
  Sex: Male

DRUGS (2)
  1. PHENTERMINE. [Concomitant]
     Active Substance: PHENTERMINE
  2. CHORIONIC GONADOTROPHIN [Suspect]
     Active Substance: CHORIOGONADOTROPIN ALFA
     Indication: WEIGHT DECREASED
     Dosage: FOR THE LAST 5 YEARS, MOST RECENT WAS 6 MONTHS PRIOR TO PRESENTATION
     Route: 065

REACTIONS (3)
  - Pulmonary embolism [Recovering/Resolving]
  - Deep vein thrombosis [Recovering/Resolving]
  - Intentional product use issue [Unknown]
